FAERS Safety Report 16237516 (Version 2)
Quarter: 2019Q3

REPORT INFORMATION
  Report Type: Spontaneous
  Country: US (occurrence: US)
  Receive Date: 20190425
  Receipt Date: 20190925
  Transmission Date: 20191004
  Serious: Yes (Other)
  Sender: FDA-Public Use
  Company Number: US-ORION CORPORATION ORION PHARMA-ENT 2019-0025

PATIENT
  Sex: Male
  Weight: 70.3 kg

DRUGS (24)
  1. ENTACAPONE (TRADE NAME UNKNOWN) [Suspect]
     Active Substance: ENTACAPONE
     Indication: PRODUCT USED FOR UNKNOWN INDICATION
     Dosage: STRENGTH: 200 MG
     Route: 065
  2. HYTRIN [Suspect]
     Active Substance: TERAZOSIN HYDROCHLORIDE
     Indication: PROSTATOMEGALY
     Dosage: STRENGTH: 10 MG
     Route: 065
     Dates: end: 201811
  3. FLOMAX [Concomitant]
     Active Substance: TAMSULOSIN HYDROCHLORIDE
     Dosage: STRENGTH: 0.4 MG
     Route: 065
  4. VITAMIN D3 [Concomitant]
     Active Substance: CHOLECALCIFEROL
     Dosage: STRENGTH: 2000 IU
     Route: 065
  5. GOCOVRI [Suspect]
     Active Substance: AMANTADINE
     Indication: DYSKINESIA
     Dosage: STRENGTH: 137 MG, AT BED TIME
     Route: 048
     Dates: start: 20180613, end: 20180619
  6. GOCOVRI [Suspect]
     Active Substance: AMANTADINE
     Dosage: STRENGTH: 137 MG, AT BED TIME
     Route: 048
     Dates: start: 201811
  7. FINASTERIDE. [Concomitant]
     Active Substance: FINASTERIDE
     Dosage: STRENGTH: 5 MG
     Route: 065
  8. GOCOVRI [Suspect]
     Active Substance: AMANTADINE
     Dosage: STRENGTH: 137 MG, AT BED TIME, ALTERNATING WITH 2 CAPSULE
     Route: 048
     Dates: start: 201908
  9. GOCOVRI [Suspect]
     Active Substance: AMANTADINE
     Dosage: STRENGTH: 137 MG, AT BED TIME, ALTERNATING WITH 1 CAPSULE
     Route: 048
     Dates: start: 201908
  10. SINEMET [Concomitant]
     Active Substance: CARBIDOPA\LEVODOPA
     Route: 065
  11. GOCOVRI [Suspect]
     Active Substance: AMANTADINE
     Dosage: STRENGTH: 137 MG, AT BED TIME
     Route: 048
     Dates: start: 201808, end: 20180912
  12. GOCOVRI [Suspect]
     Active Substance: AMANTADINE
     Dosage: STRENGTH: 137 MG, AT BED TIME
     Route: 048
     Dates: end: 201908
  13. GOCOVRI [Suspect]
     Active Substance: AMANTADINE
     Dosage: STRENGTH: 137 MG, AT BED TIME
     Route: 048
     Dates: start: 20180620, end: 201808
  14. GOCOVRI [Suspect]
     Active Substance: AMANTADINE
     Dosage: STRENGTH: 137 MG, AT BED TIME
     Route: 048
     Dates: start: 201811
  15. VITAMIN B12 [Concomitant]
     Active Substance: CYANOCOBALAMIN
     Dosage: STRENGTH: 1000 MCG
     Route: 065
  16. CYANOCOBALAMINE [Concomitant]
     Active Substance: CYANOCOBALAMIN
     Route: 065
  17. GOCOVRI [Suspect]
     Active Substance: AMANTADINE
     Dosage: STRENGTH: 137 MG, AT BED TIME
     Route: 048
     Dates: start: 20180912, end: 201811
  18. HYTRIN [Suspect]
     Active Substance: TERAZOSIN HYDROCHLORIDE
     Dosage: STRENGTH: 10 MG
     Route: 065
     Dates: start: 201811
  19. ASPIRIN. [Concomitant]
     Active Substance: ASPIRIN
     Dosage: STRENGTH: 325 MG
     Route: 065
  20. FLONASE [Concomitant]
     Active Substance: FLUTICASONE PROPIONATE
     Dosage: STRENGTH: 50 MCG
     Route: 065
  21. MELATONIN [Concomitant]
     Active Substance: MELATONIN
     Dosage: STRENGTH: 3 MG
     Route: 065
  22. LINZESS [Concomitant]
     Active Substance: LINACLOTIDE
     Route: 065
     Dates: start: 201908
  23. GOCOVRI [Suspect]
     Active Substance: AMANTADINE
     Dosage: STRENGTH: 137 MG, AT BED TIME
     Route: 048
     Dates: end: 201908
  24. ALEVE [Concomitant]
     Active Substance: NAPROXEN SODIUM
     Dosage: STRENGTH: 220 MG
     Route: 065

REACTIONS (7)
  - Constipation [Recovering/Resolving]
  - Tic [Not Recovered/Not Resolved]
  - Urinary tract infection [Unknown]
  - Dry mouth [Not Recovered/Not Resolved]
  - Hallucination, visual [Not Recovered/Not Resolved]
  - Dysphemia [Not Recovered/Not Resolved]
  - Urinary retention [Unknown]
